FAERS Safety Report 5205948-6 (Version None)
Quarter: 2007Q1

REPORT INFORMATION
  Report Type: 
  Country: None (occurrence: None)
  Receive Date: 20070111
  Receipt Date: 20070108
  Transmission Date: 20070707
  Serious: Yes (Other)
  Sender: FDA-Public Use
  Company Number: GB-GLAXOSMITHKLINE-B0453315A

PATIENT
  Age: 30 Year
  Sex: Female

DRUGS (1)
  1. NARAMIG [Suspect]
     Indication: MIGRAINE
     Route: 048

REACTIONS (1)
  - INFERTILITY FEMALE [None]
